FAERS Safety Report 19590619 (Version 4)
Quarter: 2021Q4

REPORT INFORMATION
  Report Type: Spontaneous
  Country: PT (occurrence: PT)
  Receive Date: 20210722
  Receipt Date: 20211103
  Transmission Date: 20220303
  Serious: Yes (Life-Threatening, Other)
  Sender: FDA-Public Use
  Company Number: PT-BALDACCIPT-2020020

PATIENT
  Age: 47 Year
  Sex: Female

DRUGS (10)
  1. VALSARTAN AND HYDROCHLOROTHIAZIDE [Suspect]
     Active Substance: HYDROCHLOROTHIAZIDE\VALSARTAN
     Indication: Hypertension
     Dosage: UNK
     Route: 048
  2. VALSARTAN [Suspect]
     Active Substance: VALSARTAN
     Indication: Hypertension
     Dosage: UNK
     Route: 048
  3. HYDROCHLOROTHIAZIDE\VALSARTAN [Suspect]
     Active Substance: HYDROCHLOROTHIAZIDE\VALSARTAN
     Indication: Hypertension
     Dosage: UNK
     Route: 065
  4. ASPIRIN [Concomitant]
     Active Substance: ASPIRIN
     Indication: Product used for unknown indication
     Dosage: 100 MILLIGRAM, ONCE A DAY (100 MILLIGRAM, QD)
     Route: 065
  5. AMLODIPINE [Concomitant]
     Active Substance: AMLODIPINE BESYLATE
     Indication: Blood pressure measurement
     Dosage: 20 MILLIGRAM, ONCE A DAY (20 MILLIGRAM, QD)
     Route: 065
  6. ATORVASTATIN [Concomitant]
     Active Substance: ATORVASTATIN
     Indication: Product used for unknown indication
     Dosage: 40 MILLIGRAM, ONCE A DAY (40 MILLIGRAM, QD)
     Route: 065
  7. ATENOLOL [Concomitant]
     Active Substance: ATENOLOL
     Indication: Blood pressure measurement
     Dosage: 50 MILLIGRAM, ONCE A DAY (50 MILLIGRAM, QD)
     Route: 065
  8. FOLIC ACID [Concomitant]
     Active Substance: FOLIC ACID
     Indication: Product used for unknown indication
     Dosage: 5 MILLIGRAM, ONCE A DAY (5 MILLIGRAM, QD)
     Route: 065
  9. NITROGLYCERIN [Concomitant]
     Active Substance: NITROGLYCERIN
     Indication: Blood pressure measurement
     Dosage: 5 MILLIGRAM, ONCE A DAY (5 MILLIGRAM, QD)
     Route: 062
  10. SPIRONOLACTONE [Concomitant]
     Active Substance: SPIRONOLACTONE
     Indication: Blood pressure measurement
     Dosage: 50 MILLIGRAM, ONCE A DAY (50 MILLIGRAM, QD)
     Route: 065

REACTIONS (7)
  - Intracranial aneurysm [Unknown]
  - Acute kidney injury [Recovered/Resolved]
  - Drug ineffective [Unknown]
  - Fibromuscular dysplasia [Unknown]
  - Hypertension [Unknown]
  - Nephropathy toxic [Recovered/Resolved]
  - Renal injury [Recovered/Resolved]
